FAERS Safety Report 25895268 (Version 1)
Quarter: 2025Q4

REPORT INFORMATION
  Report Type: Spontaneous
  Country: US (occurrence: US)
  Receive Date: 20251008
  Receipt Date: 20251008
  Transmission Date: 20260118
  Serious: Yes (Hospitalization)
  Sender: ANI
  Company Number: US-ANIPHARMA-030850

PATIENT
  Age: 82 Year
  Sex: Female

DRUGS (2)
  1. THYROID [Suspect]
     Active Substance: LEVOTHYROXINE\LIOTHYRONINE
     Indication: Product used for unknown indication
     Dosage: STRENGTH: TABLET 2 GRAIN (120 MG)
     Route: 048
     Dates: start: 20250915, end: 20250917
  2. THYROID [Suspect]
     Active Substance: LEVOTHYROXINE\LIOTHYRONINE
     Indication: Product used for unknown indication
     Dosage: STRENGTH: TABLET 2 GRAIN (120 MG)
     Route: 048
     Dates: start: 20250929

REACTIONS (5)
  - Product dispensing error [Unknown]
  - Diarrhoea [Recovered/Resolved]
  - Abdominal discomfort [Recovered/Resolved]
  - Headache [Recovered/Resolved]
  - Blood pressure increased [Recovered/Resolved]

NARRATIVE: CASE EVENT DATE: 20250901
